FAERS Safety Report 16971599 (Version 2)
Quarter: 2019Q4

REPORT INFORMATION
  Report Type: Spontaneous
  Country: US (occurrence: US)
  Receive Date: 20191029
  Receipt Date: 20191126
  Transmission Date: 20200122
  Serious: No
  Sender: FDA-Public Use
  Company Number: US-SLATE RUN PHARMACEUTICALS-SLTR-AE-19-108

PATIENT
  Age: 80 Year
  Sex: Male
  Weight: 50.8 kg

DRUGS (1)
  1. 70436-008-04 CINACALCET HYDROCHLORIDE TABLET 60MG [Suspect]
     Active Substance: CINACALCET HYDROCHLORIDE
     Indication: HYPERPARATHYROIDISM
     Dosage: EXACT DATES OF THERAPY UNKNOWN, JULY 2019 TO AUG 2019
     Route: 048

REACTIONS (2)
  - Peripheral swelling [Recovered/Resolved]
  - Product substitution issue [Unknown]
